FAERS Safety Report 4991858-6 (Version None)
Quarter: 2006Q2

REPORT INFORMATION
  Report Type: 
  Country: None (occurrence: None)
  Receive Date: 20060502
  Receipt Date: 20060417
  Transmission Date: 20061013
  Serious: Yes (Hospitalization)
  Sender: FDA-Public Use
  Company Number: 2006-BP-04284RO

PATIENT
  Age: 21 Year
  Sex: Male

DRUGS (2)
  1. LITHIUM CARBONATE [Suspect]
     Indication: BIPOLAR I DISORDER
     Dosage: 900 TO 1200 MG/DAY
  2. CHLORPROMAZINE [Suspect]
     Indication: BIPOLAR I DISORDER
     Dosage: 300 TO 100 MG/DAY

REACTIONS (4)
  - DRUG INEFFECTIVE [None]
  - DYSPHAGIA [None]
  - PALATAL OEDEMA [None]
  - PHARYNGOLARYNGEAL PAIN [None]
